FAERS Safety Report 5594815-4 (Version None)
Quarter: 2008Q1

REPORT INFORMATION
  Report Type: 
  Country: None (occurrence: None)
  Receive Date: 20080117
  Receipt Date: 20080110
  Transmission Date: 20080703
  Serious: Yes (Life-Threatening, Hospitalization)
  Sender: FDA-Public Use
  Company Number: B0503602A

PATIENT
  Age: 16 Year
  Sex: Female

DRUGS (3)
  1. NARAMIG [Suspect]
     Indication: MIGRAINE
     Route: 048
  2. NOCERTONE [Suspect]
     Indication: MIGRAINE
     Route: 048
     Dates: start: 20070715
  3. ALMOTRIPTAN MALATE [Suspect]
     Indication: MIGRAINE
     Route: 048

REACTIONS (10)
  - BUNDLE BRANCH BLOCK [None]
  - DISTURBANCE IN ATTENTION [None]
  - DRUG INEFFECTIVE [None]
  - ELECTROCARDIOGRAM REPOLARISATION ABNORMALITY [None]
  - EXTRAPYRAMIDAL DISORDER [None]
  - INTENTIONAL OVERDOSE [None]
  - LOSS OF CONSCIOUSNESS [None]
  - NODAL ARRHYTHMIA [None]
  - SINUS TACHYCARDIA [None]
  - VOMITING [None]
